FAERS Safety Report 6664722-4 (Version None)
Quarter: 2010Q1

REPORT INFORMATION
  Report Type: 
  Country: None (occurrence: None)
  Receive Date: 20100330
  Receipt Date: 20091218
  Transmission Date: 20100710
  Serious: Yes (Hospitalization)
  Sender: FDA-Public Use
  Company Number: 6056828

PATIENT
  Sex: Female

DRUGS (2)
  1. LEVOTHYROX [Suspect]
     Indication: THYROIDECTOMY
     Dosage: 1 DOSAGE FORMS
     Route: 048
  2. CONTRACEPTIVE PILL NOS (TABLET) (CONTRACEPTIVE) [Concomitant]

REACTIONS (7)
  - ABDOMINAL PAIN [None]
  - BLOOD THYROID STIMULATING HORMONE INCREASED [None]
  - CONSTIPATION [None]
  - DRUG INEFFECTIVE [None]
  - FATIGUE [None]
  - HYPOTHYROIDISM [None]
  - TREATMENT NONCOMPLIANCE [None]
